FAERS Safety Report 16024191 (Version 2)
Quarter: 2019Q1

REPORT INFORMATION
  Report Type: Spontaneous
  Country: JP (occurrence: JP)
  Receive Date: 20190301
  Receipt Date: 20190315
  Transmission Date: 20190418
  Serious: Yes (Hospitalization, Other)
  Sender: FDA-Public Use
  Company Number: JP-ASTRAZENECA-2019SE23991

PATIENT
  Age: 61 Year
  Sex: Male
  Weight: 89 kg

DRUGS (16)
  1. RABEPRAZOLE SODIUM. [Concomitant]
     Active Substance: RABEPRAZOLE SODIUM
     Indication: PROPHYLAXIS
     Route: 048
  2. HEPARINOID [Concomitant]
     Active Substance: CHONDROITIN SULFATE (BOVINE)
     Indication: PULMONARY EMBOLISM
     Route: 065
     Dates: start: 20181205, end: 20181224
  3. ALLOPURINOL. [Concomitant]
     Active Substance: ALLOPURINOL
     Indication: IGA NEPHROPATHY
     Route: 048
  4. TAGRISSO [Suspect]
     Active Substance: OSIMERTINIB
     Indication: NON-SMALL CELL LUNG CANCER
     Route: 048
     Dates: start: 20190205
  5. RABEPRAZOLE SODIUM. [Concomitant]
     Active Substance: RABEPRAZOLE SODIUM
     Indication: PROPHYLAXIS
     Route: 048
  6. BAYASPIRIN [Concomitant]
     Active Substance: ASPIRIN
     Indication: MYOCARDIAL INFARCTION
     Route: 048
  7. CARDENALIN [Concomitant]
     Active Substance: DOXAZOSIN MESYLATE
     Indication: IGA NEPHROPATHY
     Dosage: 1 MG IN THE MORNINGS, 2 MG IN THE EVENINGS
     Route: 048
  8. COVERSYL [Concomitant]
     Active Substance: PERINDOPRIL
     Indication: IGA NEPHROPATHY
     Route: 048
  9. COVERSYL [Concomitant]
     Active Substance: PERINDOPRIL
     Indication: IGA NEPHROPATHY
     Route: 048
  10. PHENOBAL [Concomitant]
     Active Substance: PHENOBARBITAL
     Indication: BRAIN CONTUSION
     Route: 048
  11. CARDENALIN [Concomitant]
     Active Substance: DOXAZOSIN MESYLATE
     Indication: IGA NEPHROPATHY
     Dosage: 1 MG IN THE MORNINGS, 2 MG IN THE EVENINGS
     Route: 048
  12. ALLOPURINOL. [Concomitant]
     Active Substance: ALLOPURINOL
     Indication: IGA NEPHROPATHY
     Route: 048
  13. PHENOBAL [Concomitant]
     Active Substance: PHENOBARBITAL
     Indication: BRAIN CONTUSION
     Route: 048
  14. TAGRISSO [Suspect]
     Active Substance: OSIMERTINIB
     Indication: NON-SMALL CELL LUNG CANCER
     Route: 048
     Dates: start: 20181205, end: 20190108
  15. BAYASPIRIN [Concomitant]
     Active Substance: ASPIRIN
     Indication: MYOCARDIAL INFARCTION
     Route: 048
  16. XARELTO [Concomitant]
     Active Substance: RIVAROXABAN
     Indication: PULMONARY EMBOLISM
     Route: 048
     Dates: start: 20181225

REACTIONS (4)
  - Lung disorder [Recovering/Resolving]
  - Pleural effusion [Unknown]
  - Pulmonary embolism [Unknown]
  - Deep vein thrombosis [Unknown]

NARRATIVE: CASE EVENT DATE: 20190107
